FAERS Safety Report 17951349 (Version 2)
Quarter: 2020Q3

REPORT INFORMATION
  Report Type: Spontaneous
  Country: US (occurrence: US)
  Receive Date: 20200626
  Receipt Date: 20200901
  Transmission Date: 20201103
  Serious: Yes (Death, Hospitalization, Other)
  Sender: FDA-Public Use
  Company Number: US-SA-2020SA161465

PATIENT

DRUGS (1)
  1. FABRAZYME [Suspect]
     Active Substance: AGALSIDASE BETA
     Route: 042

REACTIONS (8)
  - Cardiac arrest [Fatal]
  - SARS-CoV-2 test positive [Fatal]
  - Shock [Fatal]
  - Acute respiratory distress syndrome [Fatal]
  - COVID-19 [Fatal]
  - Atrial fibrillation [Fatal]
  - Arrhythmia [Fatal]
  - Respiratory failure [Fatal]

NARRATIVE: CASE EVENT DATE: 20200610
